FAERS Safety Report 25145751 (Version 1)
Quarter: 2025Q2

REPORT INFORMATION
  Report Type: Spontaneous
  Country: US (occurrence: US)
  Receive Date: 20250401
  Receipt Date: 20250401
  Transmission Date: 20250716
  Serious: No
  Sender: INNOGENIX
  Company Number: US-Innogenix, LLC-2174027

PATIENT

DRUGS (1)
  1. PROPRANOLOL HYDROCHLORIDE [Suspect]
     Active Substance: PROPRANOLOL HYDROCHLORIDE
     Indication: Product used for unknown indication

REACTIONS (6)
  - Taste disorder [Unknown]
  - Nausea [Unknown]
  - Condition aggravated [Unknown]
  - Postural orthostatic tachycardia syndrome [Unknown]
  - Heart rate increased [Unknown]
  - Gastrointestinal disorder [Unknown]
